FAERS Safety Report 10255554 (Version 1)
Quarter: 2014Q2

REPORT INFORMATION
  Report Type: Spontaneous
  Country: US (occurrence: US)
  Receive Date: 20140624
  Receipt Date: 20140624
  Transmission Date: 20141212
  Serious: Yes (Other)
  Sender: FDA-Public Use
  Company Number: US-TEVA-488427USA

PATIENT
  Age: 53 Year
  Sex: Female
  Weight: 85.81 kg

DRUGS (9)
  1. ACTIQ [Suspect]
     Indication: PRODUCT USED FOR UNKNOWN INDICATION
     Dosage: UNKNOWN DOSE AND FREQUENCY
  2. ACTIQ [Suspect]
     Dosage: ADJUSTING HER DOSE/HAD BEEN OUT FOR THE LAST FOUR DAYS
     Dates: end: 201406
  3. PROTONIX [Concomitant]
     Indication: GASTRIC DISORDER
     Dosage: FREQUENCY NOT PROVIDED
  4. NORVASC [Concomitant]
     Indication: PRODUCT USED FOR UNKNOWN INDICATION
  5. COZAAR [Concomitant]
     Indication: HYPOKALAEMIA
     Dosage: FREQUENCY NOT PROVIDED
  6. SOMA [Concomitant]
     Indication: MUSCLE RELAXANT THERAPY
     Dosage: FREQUENCY NOT PROVIDED
  7. AMBIEN [Concomitant]
     Indication: INSOMNIA
  8. ENDOCET [Concomitant]
     Indication: PAIN
  9. GLUCAGON [Concomitant]
     Indication: BLOOD GLUCOSE DECREASED
     Dosage: EMERGENCY KIT

REACTIONS (7)
  - Hepatic enzyme abnormal [Unknown]
  - Drug withdrawal syndrome [Unknown]
  - Hyperhidrosis [Unknown]
  - Diarrhoea [Unknown]
  - Nausea [Unknown]
  - Blood potassium decreased [Unknown]
  - Blood glucose decreased [Unknown]
